FAERS Safety Report 9648955 (Version 1)
Quarter: 2013Q4

REPORT INFORMATION
  Report Type: Spontaneous
  Country: US (occurrence: None)
  Receive Date: 20131018
  Receipt Date: 20131018
  Transmission Date: 20140711
  Serious: No
  Sender: FDA-Public Use
  Company Number: AEGR000131

PATIENT
  Age: 68 Year
  Sex: Male
  Weight: 95.2 kg

DRUGS (8)
  1. JUXTAPID [Suspect]
     Indication: HYPERCHOLESTEROLAEMIA
     Route: 048
     Dates: start: 20130725
  2. FISH OIL [Concomitant]
  3. PRAVASTATIN (PRAVASTATIN SODIUM) [Concomitant]
  4. ALEVE (NAPROXEN SODIUM) [Concomitant]
  5. METFORMIN (METFORMIN) [Concomitant]
  6. LEVOTHYROXINE (LEVOTHYROXINE SODIUM) [Concomitant]
  7. ZETIA (EZETIMIBE) [Concomitant]
  8. B-12 (CYANOCOBALAMIN) [Concomitant]

REACTIONS (4)
  - Migraine with aura [None]
  - Slow speech [None]
  - Thinking abnormal [None]
  - Abdominal pain [None]
